FAERS Safety Report 20874874 (Version 2)
Quarter: 2022Q2

REPORT INFORMATION
  Report Type: Spontaneous
  Country: GB (occurrence: GB)
  Receive Date: 20220526
  Receipt Date: 20220607
  Transmission Date: 20220720
  Serious: Yes (Hospitalization, Other)
  Sender: FDA-Public Use
  Company Number: None

PATIENT

DRUGS (13)
  1. PREDNISOLONE [Suspect]
     Active Substance: PREDNISOLONE
     Dosage: UNK
  2. CANDESARTAN [Concomitant]
     Active Substance: CANDESARTAN
     Dosage: 2 MG, QD
  3. FUROSEMIDE [Concomitant]
     Active Substance: FUROSEMIDE
     Dosage: 20 MG, BID (2 TABLETS TWICE DAILY 56 TABLET )
  4. LANSOPRAZOLE [Concomitant]
     Active Substance: LANSOPRAZOLE
     Dosage: 30 MG, QD (ONE TO BE TAKEN EACH MORNING)
  5. MESALAMINE [Concomitant]
     Active Substance: MESALAMINE
     Dosage: 1 G, QD (1G/APPLICATION FOAM ENEMA INSERT TWO METERED APPLICATIONS INTO THE RECTUM EACH DAY)
  6. METFORMIN [Concomitant]
     Active Substance: METFORMIN HYDROCHLORIDE
     Dosage: 500 MG, BID (TWO TO BE TAKEN TWICE A DAY )
  7. PREGABALIN [Concomitant]
     Active Substance: PREGABALIN
     Dosage: 25 MG, BID (ONE TO BE TAKEN TWICE A DAY 56 CAPSULE;)
  8. SIMVASTATIN [Concomitant]
     Active Substance: SIMVASTATIN
     Dosage: 40 MG, QD (ONE TO BE TAKEN AT NIGHT - STOPPED )
  9. ZOPICLONE [Concomitant]
     Active Substance: ZOPICLONE
     Dosage: 3.75 MG, QD (ONE TO BE TAKEN AT NIGHT 14 TABLET )
  10. CALCIUM CARBONATE\CHOLECALCIFEROL [Concomitant]
     Active Substance: CALCIUM CARBONATE\CHOLECALCIFEROL
     Dosage: 750 MG, QD (750MG/200UNIT CAPLETS (KYOWA KIRIN LTD))
  11. MESALAMINE [Concomitant]
     Active Substance: MESALAMINE
     Dosage: 500 MG, BID (FOUR TO BE TAKEN TWICE A DAY)
  12. UMECLIDINIUM BROMIDE [Concomitant]
     Active Substance: UMECLIDINIUM BROMIDE
     Dosage: 65 UG, QD (ONE DOSE TO BE INHALED EACH DAY)
  13. VILANTEROL [Concomitant]
     Active Substance: VILANTEROL
     Dosage: 22 UG, QD

REACTIONS (2)
  - Hyperglycaemia [Unknown]
  - Pancreatitis [Unknown]
